FAERS Safety Report 9175170 (Version 1)
Quarter: 2013Q1

REPORT INFORMATION
  Report Type: Spontaneous
  Country: US (occurrence: None)
  Receive Date: 20130315
  Receipt Date: 20130315
  Transmission Date: 20140127
  Serious: Yes (Hospitalization)
  Sender: FDA-Public Use
  Company Number: SYM-2013-01491

PATIENT
  Sex: Female

DRUGS (1)
  1. XENAZINE (TETRABENAZINE) (TABLETS) (TETRABENAZINE) [Suspect]
     Indication: DYSKINESIA
     Route: 048
     Dates: start: 20120516

REACTIONS (1)
  - Investigation [None]
